FAERS Safety Report 25818445 (Version 3)
Quarter: 2025Q4

REPORT INFORMATION
  Report Type: Report from Study
  Country: KR (occurrence: KR)
  Receive Date: 20250918
  Receipt Date: 20251111
  Transmission Date: 20260117
  Serious: No
  Sender: SUNOVION
  Company Number: KR-BIAL-BIAL-12229

PATIENT
  Sex: Male
  Weight: 54 kg

DRUGS (3)
  1. ESLICARBAZEPINE ACETATE [Suspect]
     Active Substance: ESLICARBAZEPINE ACETATE
     Indication: Epilepsy
     Dosage: 400 MILLIGRAM, 1X / DAY
     Route: 048
     Dates: start: 20230331, end: 20230406
  2. ESLICARBAZEPINE ACETATE [Suspect]
     Active Substance: ESLICARBAZEPINE ACETATE
     Dosage: 800 MILLIGRAM, 1X / DAY
     Route: 048
     Dates: start: 20230407, end: 20230414
  3. ZONISAMIDE [Concomitant]
     Active Substance: ZONISAMIDE
     Indication: Epilepsy
     Dosage: 1 DOSAGE FORM, 2X / DAY
     Route: 048
     Dates: start: 20220803

REACTIONS (1)
  - Seizure [Unknown]

NARRATIVE: CASE EVENT DATE: 20230414
